FAERS Safety Report 16163365 (Version 3)
Quarter: 2019Q2

REPORT INFORMATION
  Report Type: Report from Study
  Country: TW (occurrence: TW)
  Receive Date: 20190405
  Receipt Date: 20190521
  Transmission Date: 20190711
  Serious: Yes (Hospitalization, Other)
  Sender: FDA-Public Use
  Company Number: TW-UCBSA-2019013651

PATIENT
  Age: 51 Year
  Sex: Male
  Weight: 72.4 kg

DRUGS (8)
  1. PREDNISOLONE. [Concomitant]
     Active Substance: PREDNISOLONE
     Indication: RHEUMATOID ARTHRITIS
     Dosage: 5 MG, 2X/DAY (BID)
     Route: 048
     Dates: start: 20120312, end: 20190327
  2. ACETAMINOPHEN. [Concomitant]
     Active Substance: ACETAMINOPHEN
     Indication: PROPHYLAXIS
     Dosage: 500 MG, 4X/DAY (QID)
     Route: 048
     Dates: start: 20190327
  3. TRAMADOL AND ACETAMINOPHEN [Concomitant]
     Active Substance: ACETAMINOPHEN\TRAMADOL HYDROCHLORIDE
     Indication: RHEUMATOID ARTHRITIS
     Dosage: 1 DF, 2X/DAY (BID)
     Route: 048
     Dates: start: 20190121, end: 20190327
  4. CERTOLIZUMAB PEGOL [Suspect]
     Active Substance: CERTOLIZUMAB PEGOL
     Indication: RHEUMATOID ARTHRITIS
     Dosage: 400 MG, MONTHLY (QM)
     Route: 058
     Dates: start: 20190225, end: 20190312
  5. IWELL [Concomitant]
     Indication: PROPHYLAXIS
     Dosage: 1 DF, 2X/DAY (BID)
     Route: 048
     Dates: start: 20181126, end: 20190327
  6. ETORICOXIB. [Concomitant]
     Active Substance: ETORICOXIB
     Indication: RHEUMATOID ARTHRITIS
     Dosage: 60 MG, ONCE DAILY (QD)
     Route: 048
     Dates: start: 20190121, end: 20190327
  7. METHOTREXATE SODIUM. [Concomitant]
     Active Substance: METHOTREXATE SODIUM
     Indication: RHEUMATOID ARTHRITIS
     Dosage: 7.5 MG, WEEKLY (QW)
     Route: 048
     Dates: start: 20190327
  8. TRIMETHOPRIM SULFAMETHOXAZOLE [Concomitant]
     Active Substance: SULFAMETHOXAZOLE\TRIMETHOPRIM
     Indication: PNEUMOCYSTIS JIROVECII PNEUMONIA
     Dosage: UNK

REACTIONS (15)
  - Influenza [Unknown]
  - Pneumothorax [Unknown]
  - Infective myositis [Not Recovered/Not Resolved]
  - Pain in extremity [Unknown]
  - Acute respiratory distress syndrome [Unknown]
  - Weight decreased [Unknown]
  - Off label use [Unknown]
  - Polymyositis [Unknown]
  - Disseminated tuberculosis [Unknown]
  - Jaundice [Unknown]
  - Acute kidney injury [Unknown]
  - Pneumocystis jirovecii pneumonia [Unknown]
  - Asthenia [Unknown]
  - Pneumonia [Unknown]
  - Septic shock [Unknown]

NARRATIVE: CASE EVENT DATE: 2019
